FAERS Safety Report 14491154 (Version 1)
Quarter: 2018Q1

REPORT INFORMATION
  Report Type: Report from Study
  Country: MX (occurrence: MX)
  Receive Date: 20180206
  Receipt Date: 20180206
  Transmission Date: 20180509
  Serious: Yes (Other)
  Sender: FDA-Public Use
  Company Number: MX-BAYER-2017-221415

PATIENT
  Age: 54 Year
  Sex: Male
  Weight: 93 kg

DRUGS (4)
  1. NEXAVAR [Suspect]
     Active Substance: SORAFENIB
     Indication: RENAL CELL CARCINOMA
     Dosage: UNK
     Dates: end: 20180130
  2. NEXAVAR [Suspect]
     Active Substance: SORAFENIB
     Indication: RENAL CELL CARCINOMA
     Dosage: 400 MG, BID
     Dates: start: 20171110, end: 20180112
  3. PEG [Suspect]
     Active Substance: POLYETHYLENE GLYCOLS
  4. SENNOSIDE [Concomitant]
     Active Substance: SENNOSIDES

REACTIONS (17)
  - Hepatic neoplasm [Not Recovered/Not Resolved]
  - Hemianaesthesia [Not Recovered/Not Resolved]
  - Pancreatic neoplasm [Not Recovered/Not Resolved]
  - Renal pain [Not Recovered/Not Resolved]
  - Constipation [Not Recovered/Not Resolved]
  - Abdominal pain [Not Recovered/Not Resolved]
  - Hypoaesthesia [Recovering/Resolving]
  - Skin exfoliation [Not Recovered/Not Resolved]
  - Hypoaesthesia [Not Recovered/Not Resolved]
  - Drug ineffective [Not Recovered/Not Resolved]
  - Pre-existing condition improved [None]
  - Application site irritation [Unknown]
  - Pruritus [Not Recovered/Not Resolved]
  - Skin discolouration [Not Recovered/Not Resolved]
  - Blister [Not Recovered/Not Resolved]
  - Dry skin [Not Recovered/Not Resolved]
  - Pyrexia [Not Recovered/Not Resolved]

NARRATIVE: CASE EVENT DATE: 2017
